FAERS Safety Report 18031406 (Version 2)
Quarter: 2020Q3

REPORT INFORMATION
  Report Type: Spontaneous
  Country: US (occurrence: US)
  Receive Date: 20200716
  Receipt Date: 20200924
  Transmission Date: 20201103
  Serious: Yes (Other)
  Sender: FDA-Public Use
  Company Number: US-009507513-2007USA005846

PATIENT
  Age: 35 Year
  Sex: Female

DRUGS (1)
  1. NEXPLANON [Suspect]
     Active Substance: ETONOGESTREL
     Indication: CONTRACEPTION
     Dosage: 1 IMPLANT (REPORTED AS 68 MILLIGRAM, ONCE)
     Route: 059
     Dates: start: 202005, end: 2020

REACTIONS (6)
  - Paraesthesia [Recovered/Resolved]
  - Nerve injury [Unknown]
  - Pain [Unknown]
  - Scar [Unknown]
  - Neoplasm malignant [Unknown]
  - Burning sensation [Recovered/Resolved]

NARRATIVE: CASE EVENT DATE: 2020
